FAERS Safety Report 19268208 (Version 3)
Quarter: 2021Q2

REPORT INFORMATION
  Report Type: Report from Study
  Country: US (occurrence: US)
  Receive Date: 20210518
  Receipt Date: 20210609
  Transmission Date: 20210717
  Serious: No
  Sender: FDA-Public Use
  Company Number: US-AGIOS-2105US02741

PATIENT

DRUGS (1)
  1. TIBSOVO [Suspect]
     Active Substance: IVOSIDENIB
     Indication: ACUTE MYELOID LEUKAEMIA
     Dosage: 500 MILLIGRAM (2 TABLETS X250 MG), QD
     Route: 048
     Dates: start: 20201222

REACTIONS (1)
  - Cardiac disorder [Unknown]
